FAERS Safety Report 23782230 (Version 1)
Quarter: 2024Q2

REPORT INFORMATION
  Report Type: Other
  Country: IL (occurrence: IL)
  Receive Date: 20240425
  Receipt Date: 20240425
  Transmission Date: 20240716
  Serious: Yes (Other)
  Sender: FDA-Public Use
  Company Number: IL-Appco Pharma LLC-2156015

PATIENT
  Age: 15 Year
  Sex: Female

DRUGS (1)
  1. HYDROXYCHLOROQUINE SULFATE [Suspect]
     Active Substance: HYDROXYCHLOROQUINE SULFATE
     Indication: Systemic lupus erythematosus
     Route: 065

REACTIONS (3)
  - Toxicity to various agents [Recovered/Resolved]
  - Neuropathy peripheral [Recovered/Resolved]
  - Myopathy [Recovered/Resolved]
